FAERS Safety Report 7808881-6 (Version None)
Quarter: 2011Q4

REPORT INFORMATION
  Report Type: 
  Country: None (occurrence: None)
  Receive Date: 20111012
  Receipt Date: 20111010
  Transmission Date: 20120403
  Serious: No
  Sender: FDA-Public Use
  Company Number: PHEH2011US06430

PATIENT
  Sex: Male
  Weight: 79.365 kg

DRUGS (6)
  1. AMBIEN CR [Concomitant]
     Dosage: 12.5 MG, UNK
  2. TASIGNA [Suspect]
     Dosage: 400 MG, Q12H
  3. METFORMIN HYDROCHLORIDE [Concomitant]
     Dosage: 500 MG, UNK
  4. FLONASE [Concomitant]
     Dosage: 0.05 %, UNK
  5. NAPROXEN (ALEVE) [Concomitant]
     Dosage: 220 MG, UNK
  6. ALLEGRA [Concomitant]
     Dosage: 30 MG, UNK

REACTIONS (2)
  - RASH ERYTHEMATOUS [None]
  - RASH [None]
